FAERS Safety Report 5401783-4 (Version None)
Quarter: 2007Q3

REPORT INFORMATION
  Report Type: 
  Country: None (occurrence: None)
  Receive Date: 20070731
  Receipt Date: 20070719
  Transmission Date: 20080115
  Serious: Yes (Other)
  Sender: FDA-Public Use
  Company Number: DE-GENENTECH-245087

PATIENT
  Age: 55 Year
  Sex: Female

DRUGS (3)
  1. AVASTIN [Suspect]
     Indication: MACULAR DEGENERATION
     Dosage: 1.5 MG, UNK
     Route: 031
  2. NEOMYCIN [Concomitant]
     Indication: PROPHYLAXIS
  3. POLYMYXIN [Concomitant]
     Indication: PROPHYLAXIS

REACTIONS (1)
  - ENDOPHTHALMITIS [None]
